FAERS Safety Report 6192548-7 (Version None)
Quarter: 2009Q2

REPORT INFORMATION
  Report Type: 
  Country: None (occurrence: None)
  Receive Date: 20090518
  Receipt Date: 20090507
  Transmission Date: 20091009
  Serious: Yes (Hospitalization)
  Sender: FDA-Public Use
  Company Number: US-AMGEN-QUU344624

PATIENT
  Sex: Female
  Weight: 64 kg

DRUGS (5)
  1. ENBREL [Suspect]
     Indication: RHEUMATOID ARTHRITIS
     Route: 058
     Dates: start: 20010601
  2. CARDIZEM [Concomitant]
  3. DAYPRO [Concomitant]
  4. ASPIRIN [Concomitant]
  5. DIOVAN [Concomitant]

REACTIONS (2)
  - OSTEOARTHRITIS [None]
  - THROAT LESION [None]
